FAERS Safety Report 8799520 (Version 1)
Quarter: 2012Q4

REPORT INFORMATION
  Report Type: Spontaneous
  Country: IT (occurrence: None)
  Receive Date: 20120914
  Receipt Date: 20120914
  Transmission Date: 20130627
  Serious: Yes (Hospitalization, Other)
  Sender: FDA-Public Use
  Company Number: 2012P1056336

PATIENT
  Age: 70 Year
  Sex: Female

DRUGS (7)
  1. LANOXIN [Suspect]
     Indication: ATRIAL FIBRILLATION
     Dosage: 0.5 Units; 1X; IV
     Route: 042
     Dates: start: 20120830, end: 20120830
  2. ATORVASTATIN [Concomitant]
  3. CALCIUM [Concomitant]
  4. WARFARIN [Concomitant]
  5. GLIMEPIRIDE [Concomitant]
  6. AMIODARONE [Concomitant]
  7. KARVEZIDE [Concomitant]

REACTIONS (3)
  - Laryngeal oedema [None]
  - Dyspnoea [None]
  - Swelling face [None]
